FAERS Safety Report 6668327-0 (Version None)
Quarter: 2010Q2

REPORT INFORMATION
  Report Type: 
  Country: None (occurrence: None)
  Receive Date: 20100406
  Receipt Date: 20100323
  Transmission Date: 20101027
  Serious: No
  Sender: FDA-Public Use
  Company Number: US-JNJFOC-20100307242

PATIENT
  Sex: Female
  Weight: 63.5 kg

DRUGS (1)
  1. FENTANYL CITRATE [Suspect]
     Indication: PAIN
     Route: 062

REACTIONS (3)
  - APPLICATION SITE PAIN [None]
  - DEVICE LEAKAGE [None]
  - WRONG TECHNIQUE IN DRUG USAGE PROCESS [None]
